FAERS Safety Report 18991858 (Version 1)
Quarter: 2021Q1

REPORT INFORMATION
  Report Type: Spontaneous
  Country: US (occurrence: US)
  Receive Date: 20210310
  Receipt Date: 20210310
  Transmission Date: 20210420
  Serious: No
  Sender: FDA-Public Use
  Company Number: US-ORION CORPORATION ORION PHARMA-ENTC2019-0276

PATIENT
  Sex: Female

DRUGS (1)
  1. LEVODOPA?CARBIDOPA?ENTACAPONE [Suspect]
     Active Substance: CARBIDOPA\ENTACAPONE\LEVODOPA
     Indication: PARKINSON^S DISEASE
     Dosage: STRENGTH: 100/25/200 MG
     Route: 065
     Dates: start: 20191024, end: 20191115

REACTIONS (3)
  - Drug ineffective [Unknown]
  - Product complaint [Unknown]
  - Therapeutic response shortened [Unknown]
